FAERS Safety Report 18643042 (Version 1)
Quarter: 2020Q4

REPORT INFORMATION
  Report Type: Spontaneous
  Country: US (occurrence: US)
  Receive Date: 20201220
  Receipt Date: 20201220
  Transmission Date: 20210114
  Serious: Yes (Disabling)
  Sender: FDA-Public Use
  Company Number: None

PATIENT
  Age: 25 Year
  Sex: Male
  Weight: 76.5 kg

DRUGS (10)
  1. MAGNESIUM OXIDE. [Concomitant]
     Active Substance: MAGNESIUM OXIDE
  2. CABBAGE JUICE [Concomitant]
  3. MSM [Concomitant]
     Active Substance: DIMETHYL SULFONE
  4. CIPROFLOXACIN. [Suspect]
     Active Substance: CIPROFLOXACIN
     Indication: INFECTION
     Dosage: ?          QUANTITY:1 TABLET(S);?
     Route: 048
     Dates: start: 20200601, end: 20200601
  5. VIT D [Concomitant]
     Active Substance: VITAMIN D NOS
  6. VITAMIN E [Concomitant]
     Active Substance: .ALPHA.-TOCOPHEROL
  7. CHONDROITIN + GLUCOSAMIN [Concomitant]
  8. OMEGA 3 SALMON OIL [Concomitant]
  9. DEXILANT [Concomitant]
     Active Substance: DEXLANSOPRAZOLE
  10. ZINC L CARNISONE [Concomitant]

REACTIONS (4)
  - Joint noise [None]
  - Muscle spasms [None]
  - Tendon pain [None]
  - Arthralgia [None]

NARRATIVE: CASE EVENT DATE: 20200601
